FAERS Safety Report 4950268-8 (Version None)
Quarter: 2006Q1

REPORT INFORMATION
  Report Type: 
  Country: None (occurrence: None)
  Receive Date: 20060316
  Receipt Date: 20060302
  Transmission Date: 20060701
  Serious: Yes (Other)
  Sender: FDA-Public Use
  Company Number: 2006-BP-02388RO

PATIENT
  Age: 41 Year
  Sex: Male

DRUGS (3)
  1. LITHIUM CARBONATE [Suspect]
     Indication: SCHIZOAFFECTIVE DISORDER
     Dosage: SEE TEXT, PO
     Route: 048
  2. ZIPRASIDONE (ZIPRASIDONE) [Suspect]
     Indication: SCHIZOAFFECTIVE DISORDER
     Dosage: IM
     Route: 030
  3. CHLORPROMAZINE [Concomitant]

REACTIONS (15)
  - AGGRESSION [None]
  - AGITATION [None]
  - BLOOD SODIUM INCREASED [None]
  - CONFUSIONAL STATE [None]
  - COORDINATION ABNORMAL [None]
  - DRUG INTERACTION [None]
  - DYSARTHRIA [None]
  - EUPHORIC MOOD [None]
  - GAIT DISTURBANCE [None]
  - HYPOMANIA [None]
  - IRRITABILITY [None]
  - LOGORRHOEA [None]
  - SOMNOLENCE [None]
  - THERAPEUTIC AGENT TOXICITY [None]
  - TREMOR [None]
